FAERS Safety Report 12591148 (Version 2)
Quarter: 2016Q3

REPORT INFORMATION
  Report Type: Spontaneous
  Country: US (occurrence: US)
  Receive Date: 20160726
  Receipt Date: 20160727
  Transmission Date: 20161109
  Serious: No
  Sender: FDA-Public Use
  Company Number: US-UNITED THERAPEUTICS-UNT-2016-003936

PATIENT
  Age: 8 Month
  Sex: Female
  Weight: 4.99 kg

DRUGS (2)
  1. REVATIO [Concomitant]
     Active Substance: SILDENAFIL CITRATE
     Indication: PRODUCT USED FOR UNKNOWN INDICATION
  2. REMODULIN [Suspect]
     Active Substance: TREPROSTINIL
     Indication: PULMONARY HYPERTENSION
     Dosage: 0.02488 ?G/KG, CONTINUING
     Route: 058
     Dates: start: 20151016

REACTIONS (5)
  - Dermatitis contact [Recovered/Resolved]
  - Infusion site rash [Unknown]
  - Rash [Unknown]
  - Hyperhidrosis [Recovered/Resolved]
  - Muscle twitching [Recovered/Resolved]

NARRATIVE: CASE EVENT DATE: 201603
